FAERS Safety Report 12581595 (Version 1)
Quarter: 2016Q3

REPORT INFORMATION
  Report Type: Spontaneous
  Country: US (occurrence: US)
  Receive Date: 20160722
  Receipt Date: 20160722
  Transmission Date: 20161109
  Serious: No
  Sender: FDA-Public Use
  Company Number: US-LUPIN PHARMACEUTICALS INC.-E2B_00004483

PATIENT
  Sex: Female
  Weight: 56.75 kg

DRUGS (4)
  1. TRANDOLAPRIL TABLETS USP 4 MG [Suspect]
     Active Substance: TRANDOLAPRIL
     Indication: HYPERTENSION
     Dates: start: 20151012
  2. GENERIC NORVASC [Concomitant]
     Indication: HYPERTENSION
  3. PLAVIX [Concomitant]
     Active Substance: CLOPIDOGREL BISULFATE
     Indication: ARTERIAL OCCLUSIVE DISEASE
  4. BABY ASPIRIN [Concomitant]
     Active Substance: ASPIRIN
     Indication: ANTICOAGULANT THERAPY
     Route: 065

REACTIONS (2)
  - Body temperature increased [Recovered/Resolved]
  - Chills [Recovered/Resolved]
